FAERS Safety Report 7801074-8 (Version None)
Quarter: 2011Q4

REPORT INFORMATION
  Report Type: 
  Country: None (occurrence: None)
  Receive Date: 20111007
  Receipt Date: 20110926
  Transmission Date: 20120403
  Serious: No
  Sender: FDA-Public Use
  Company Number: US-BIOGENIDEC-2011BI036847

PATIENT
  Sex: Female

DRUGS (2)
  1. TYSABRI [Suspect]
     Indication: MULTIPLE SCLEROSIS
     Route: 042
     Dates: start: 20061024, end: 20110224
  2. TYSABRI [Suspect]
     Route: 042
     Dates: start: 20050224

REACTIONS (4)
  - HYPERAESTHESIA [None]
  - HERPES VIRUS INFECTION [None]
  - DEPRESSION [None]
  - INSOMNIA [None]
